FAERS Safety Report 22522735 (Version 1)
Quarter: 2023Q2

REPORT INFORMATION
  Report Type: Spontaneous
  Country: CN (occurrence: CN)
  Receive Date: 20230605
  Receipt Date: 20230605
  Transmission Date: 20230721
  Serious: Yes (Hospitalization, Other)
  Sender: FDA-Public Use
  Company Number: CN-BAYER-2023A076076

PATIENT
  Age: 68 Year
  Sex: Male
  Weight: 49 kg

DRUGS (2)
  1. XARELTO [Suspect]
     Active Substance: RIVAROXABAN
     Indication: Atrial fibrillation
     Dosage: 10 MG, QD
     Route: 048
     Dates: start: 20221101, end: 20230503
  2. XARELTO [Suspect]
     Active Substance: RIVAROXABAN
     Indication: Anticoagulant therapy
     Dosage: 10 MG, QD
     Route: 048
     Dates: start: 20230508

REACTIONS (7)
  - Upper gastrointestinal haemorrhage [Recovering/Resolving]
  - Coagulopathy [Recovering/Resolving]
  - Blood loss anaemia [Recovering/Resolving]
  - Melaena [Recovered/Resolved]
  - Asthenia [Unknown]
  - Underdose [Unknown]
  - Prescribed underdose [Unknown]

NARRATIVE: CASE EVENT DATE: 20221101
